FAERS Safety Report 25859915 (Version 1)
Quarter: 2025Q3

REPORT INFORMATION
  Report Type: Spontaneous
  Country: US (occurrence: None)
  Receive Date: 20250926
  Receipt Date: 20250926
  Transmission Date: 20251021
  Serious: Yes (Other)
  Sender: FDA-CTU
  Company Number: None

PATIENT
  Age: 65 Year
  Sex: Female
  Weight: 80.1 kg

DRUGS (7)
  1. PYRIDOXINE\SEMAGLUTIDE [Suspect]
     Active Substance: PYRIDOXINE\SEMAGLUTIDE
     Indication: Weight decreased
     Route: 061
     Dates: start: 20250728, end: 20250728
  2. AMLODIPINE [Concomitant]
     Active Substance: AMLODIPINE BESYLATE
  3. COENZYME Q10 [Concomitant]
     Active Substance: DIETARY SUPPLEMENT\UBIDECARENONE
  4. VITAMIN C [Concomitant]
     Active Substance: ASCORBIC ACID
  5. VITA D [Concomitant]
  6. MAGNESIUM [Concomitant]
     Active Substance: MAGNESIUM
  7. PROIOTICS [Concomitant]

REACTIONS (2)
  - Visual impairment [None]
  - Optic ischaemic neuropathy [None]

NARRATIVE: CASE EVENT DATE: 20250729
